FAERS Safety Report 9550207 (Version 1)
Quarter: 2013Q3

REPORT INFORMATION
  Report Type: Spontaneous
  Country: US (occurrence: US)
  Receive Date: 20130924
  Receipt Date: 20130924
  Transmission Date: 20140515
  Serious: No
  Sender: FDA-Public Use
  Company Number: US-B.I. PHARMACEUTICALS,INC./RIDGEFIELD-2013-BI-28629BP

PATIENT
  Age: 70 Year
  Sex: Female
  Weight: 64 kg

DRUGS (10)
  1. SPIRIVA [Suspect]
     Indication: CHRONIC OBSTRUCTIVE PULMONARY DISEASE
     Dosage: 18 MCG
     Route: 055
     Dates: start: 2012
  2. POTASSIUM [Concomitant]
     Dosage: 20 MEQ
     Route: 048
  3. ATENOLOL [Concomitant]
     Dosage: 25 MG
     Route: 048
  4. GEMFIBROZIL [Concomitant]
     Dosage: 600 MG
     Route: 048
  5. SINGULAIR [Concomitant]
     Dosage: 10 MG
     Route: 048
  6. HYDROCHLOROTHIAZIDE [Concomitant]
     Dosage: 50 MG
     Route: 048
  7. PROVASTATIN [Concomitant]
     Dosage: 60 MG
     Route: 048
  8. ASPIRIN [Concomitant]
     Dosage: 81 MG
     Route: 048
  9. SYMBICORT [Concomitant]
     Dosage: (INHALATION AEROSOL)
     Route: 055
  10. AMLODIPINE [Concomitant]
     Dosage: 10 MG
     Route: 048

REACTIONS (4)
  - Cough [Not Recovered/Not Resolved]
  - Fall [Recovered/Resolved]
  - Back pain [Not Recovered/Not Resolved]
  - Head injury [Not Recovered/Not Resolved]
